FAERS Safety Report 11419823 (Version 2)
Quarter: 2015Q3

REPORT INFORMATION
  Report Type: Spontaneous
  Country: CA (occurrence: CA)
  Receive Date: 20150826
  Receipt Date: 20150916
  Transmission Date: 20151125
  Serious: Yes (Other)
  Sender: FDA-Public Use
  Company Number: CA-SA-2015SA126920

PATIENT
  Age: 95 Year
  Sex: Female
  Weight: 60 kg

DRUGS (9)
  1. SYNTHROID [Concomitant]
     Active Substance: LEVOTHYROXINE SODIUM
  2. SALBUTAMOL [Concomitant]
     Active Substance: ALBUTEROL
     Dosage: DOSE: 1 PUFF
  3. TYLENOL [Concomitant]
     Active Substance: ACETAMINOPHEN
     Route: 048
  4. FERRLECIT [Suspect]
     Active Substance: SODIUM FERRIC GLUCONATE COMPLEX
     Indication: HAEMOGLOBIN DECREASED
     Dosage: FREUQENCY: TWICE WEEKLY
     Route: 042
     Dates: start: 20150525, end: 20150615
  5. COVERSYL [Concomitant]
     Active Substance: PERINDOPRIL
  6. BENADRYL [Concomitant]
     Active Substance: DIPHENHYDRAMINE HYDROCHLORIDE
     Route: 042
  7. FUROSEMIDE. [Concomitant]
     Active Substance: FUROSEMIDE
  8. ATROVENT [Concomitant]
     Active Substance: IPRATROPIUM BROMIDE
     Dosage: 2 PUFFS Q6H
  9. VITAMIN D NOS/CALCIUM CARBONATE [Concomitant]

REACTIONS (10)
  - Dysphonia [Recovering/Resolving]
  - Blood pressure decreased [Recovering/Resolving]
  - Pallor [Recovering/Resolving]
  - Vital functions abnormal [Recovering/Resolving]
  - Faecal incontinence [Recovering/Resolving]
  - Peripheral coldness [Recovering/Resolving]
  - Nausea [Recovering/Resolving]
  - Lethargy [Recovering/Resolving]
  - Vomiting [Recovering/Resolving]
  - Urinary incontinence [Recovering/Resolving]

NARRATIVE: CASE EVENT DATE: 20150615
